FAERS Safety Report 25499264 (Version 1)
Quarter: 2025Q2

REPORT INFORMATION
  Report Type: Spontaneous
  Country: US (occurrence: None)
  Receive Date: 20250630
  Receipt Date: 20250630
  Transmission Date: 20250716
  Serious: Yes (Life-Threatening, Hospitalization)
  Sender: FDA-CTU
  Company Number: None

PATIENT
  Age: 65 Year
  Sex: Female
  Weight: 73.03 kg

DRUGS (2)
  1. BACLOFEN [Suspect]
     Active Substance: BACLOFEN
     Route: 037
     Dates: start: 20221116
  2. HYDROMORPHONE [Suspect]
     Active Substance: HYDROMORPHONE

REACTIONS (4)
  - Loss of consciousness [None]
  - Drug screen positive [None]
  - Respiratory acidosis [None]
  - Wrong product administered [None]

NARRATIVE: CASE EVENT DATE: 20250610
